FAERS Safety Report 9490644 (Version 2)
Quarter: 2013Q3

REPORT INFORMATION
  Report Type: Spontaneous
  Country: US (occurrence: US)
  Receive Date: 20130830
  Receipt Date: 20130912
  Transmission Date: 20140515
  Serious: Yes (Other)
  Sender: FDA-Public Use
  Company Number: PHEH2013US018169

PATIENT
  Sex: Female

DRUGS (16)
  1. DIOVAN [Suspect]
     Dosage: 1 DF(160MG), PER DAY
  2. GLYBURIDE [Suspect]
     Dosage: 2 DF(5MG), PER DAY
  3. IMDUR [Suspect]
     Dosage: 2 DF(60MG), PER DAY
  4. BYSTOLIC [Suspect]
     Dosage: 1 DF(5MG), PER DAY
  5. BUMEX [Suspect]
     Dosage: 1 DF(2MG), PER DAY
  6. ASPIRIN [Suspect]
     Dosage: 1 DF(81MG), PER DAY
  7. COUMADINE [Suspect]
     Dosage: 1 DF(4MG), PER DAY
  8. SYNTHROID [Suspect]
     Dosage: 1 DF(75UG), PER DAY
  9. XANAX [Suspect]
     Dosage: 0.25 MG, UNK
  10. BETAGEN [Suspect]
     Dosage: 0.5 UKN, UNK
  11. VITAMIN C [Concomitant]
     Dosage: 1000 MG, PER DAY
  12. FISH OIL [Concomitant]
     Dosage: 1 DF(1000MG), UNK
  13. B12-VITAMIN [Concomitant]
     Dosage: UNK UKN, UNK
  14. B6 [Concomitant]
     Dosage: UNK UKN, UNK
  15. FOLIC ACID [Concomitant]
     Dosage: UNK UKN, UNK
  16. XOPENEX [Concomitant]
     Dosage: UNK UKN, UNK

REACTIONS (5)
  - Myocardial infarction [Unknown]
  - Cerebrovascular accident [Unknown]
  - Breast cancer [Unknown]
  - Chronic obstructive pulmonary disease [Unknown]
  - Pneumonia [Unknown]
